FAERS Safety Report 22362792 (Version 1)
Quarter: 2023Q2

REPORT INFORMATION
  Report Type: Report from Study
  Country: US (occurrence: US)
  Receive Date: 20230524
  Receipt Date: 20230524
  Transmission Date: 20230721
  Serious: Yes (Hospitalization, Other)
  Sender: FDA-Public Use
  Company Number: US-ABBVIE-5178312

PATIENT
  Sex: Male

DRUGS (1)
  1. VENCLEXTA [Suspect]
     Active Substance: VENETOCLAX
     Indication: Lymphocytic leukaemia
     Dosage: FORM STRENGTH 100 MILLIGRAM
     Route: 048

REACTIONS (5)
  - Anaemia [Unknown]
  - Neoplasm malignant [Unknown]
  - Off label use [Unknown]
  - Rash [Unknown]
  - Nasopharyngitis [Unknown]
